FAERS Safety Report 5095869-4 (Version None)
Quarter: 2006Q3

REPORT INFORMATION
  Report Type: 
  Country: None (occurrence: None)
  Receive Date: 20060726
  Receipt Date: 20060531
  Transmission Date: 20061208
  Serious: No
  Sender: FDA-Public Use
  Company Number: 012287

PATIENT
  Age: 42 Year
  Sex: Female

DRUGS (4)
  1. PRIALT [Suspect]
     Indication: PAIN
     Dosage: 0.27 UG, ONCE/HOUR, INTRATHECAL
     Route: 037
     Dates: start: 20060301
  2. MS CONTIN [Concomitant]
  3. NEURONTIN [Concomitant]
  4. ATIVAN [Concomitant]

REACTIONS (9)
  - ANGER [None]
  - ANXIETY [None]
  - CONDITION AGGRAVATED [None]
  - DEPRESSION [None]
  - MEMORY IMPAIRMENT [None]
  - MOOD ALTERED [None]
  - OEDEMA PERIPHERAL [None]
  - SEDATION [None]
  - VISION BLURRED [None]
